FAERS Safety Report 6828750-8 (Version None)
Quarter: 2010Q3

REPORT INFORMATION
  Report Type: 
  Country: None (occurrence: None)
  Receive Date: 20100706
  Receipt Date: 20100623
  Transmission Date: 20110219
  Serious: Yes (Death)
  Sender: FDA-Public Use
  Company Number: 005903

PATIENT
  Sex: Female

DRUGS (1)
  1. KEPPRA [Suspect]
     Indication: EPILEPSY
     Dosage: 1.25 G BID ORAL
     Dates: start: 20090301

REACTIONS (2)
  - RESPIRATORY ARREST [None]
  - SUDDEN UNEXPLAINED DEATH IN EPILEPSY [None]
